FAERS Safety Report 4961292-3 (Version None)
Quarter: 2006Q1

REPORT INFORMATION
  Report Type: 
  Country: None (occurrence: None)
  Receive Date: 20060201
  Receipt Date: 20051201
  Transmission Date: 20060701
  Serious: No
  Sender: FDA-Public Use
  Company Number: 2005PV005230

PATIENT
  Age: 57 Year
  Sex: Female
  Weight: 75.2971 kg

DRUGS (4)
  1. BYETTA [Suspect]
     Indication: DIABETES MELLITUS NON-INSULIN-DEPENDENT
     Dosage: 5 MCG;BID;SC
     Route: 058
     Dates: start: 20051117
  2. IMODIUM [Concomitant]
  3. METAMUCIL-2 [Concomitant]
  4. LOMOTIL [Concomitant]

REACTIONS (4)
  - DYSPEPSIA [None]
  - INCREASED APPETITE [None]
  - THERAPEUTIC RESPONSE UNEXPECTED [None]
  - WEIGHT DECREASED [None]
